FAERS Safety Report 9555353 (Version 3)
Quarter: 2013Q4

REPORT INFORMATION
  Report Type: Spontaneous
  Country: US (occurrence: US)
  Receive Date: 20130926
  Receipt Date: 20131028
  Transmission Date: 20140711
  Serious: No
  Sender: FDA-Public Use
  Company Number: US-JNJFOC-20130913306

PATIENT
  Age: 42 Year
  Sex: Male
  Weight: 103.42 kg

DRUGS (6)
  1. DURAGESIC [Suspect]
     Indication: HIP ARTHROPLASTY
     Route: 062
     Dates: start: 2012
  2. DURAGESIC [Suspect]
     Indication: BACK INJURY
     Route: 062
     Dates: start: 2012
  3. DURAGESIC [Suspect]
     Indication: POST GASTRIC SURGERY SYNDROME
     Route: 062
     Dates: start: 2012
  4. PERCOCET [Concomitant]
     Indication: BREAKTHROUGH PAIN
     Dates: start: 2012
  5. XANAX [Concomitant]
     Dates: start: 2012
  6. CELEXA [Concomitant]
     Dates: start: 2012

REACTIONS (7)
  - Arthralgia [Not Recovered/Not Resolved]
  - Neuralgia [Unknown]
  - Drug dose omission [Recovered/Resolved]
  - Insomnia [Unknown]
  - Product quality issue [Unknown]
  - Therapeutic response decreased [Unknown]
  - Wrong technique in drug usage process [Not Recovered/Not Resolved]
